FAERS Safety Report 6403134-5 (Version None)
Quarter: 2009Q4

REPORT INFORMATION
  Report Type: 
  Country: None (occurrence: None)
  Receive Date: 20091015
  Receipt Date: 20091015
  Transmission Date: 20100525
  Serious: No
  Sender: FDA-Public Use
  Company Number: None

PATIENT
  Sex: Female
  Weight: 63.9572 kg

DRUGS (1)
  1. ARIMIDEX [Suspect]
     Dosage: 1 PILL AT BEDTIME ALMOST 5 YEARS

REACTIONS (1)
  - ALOPECIA [None]
